FAERS Safety Report 4414052-6 (Version None)
Quarter: 2004Q3

REPORT INFORMATION
  Report Type: 
  Country: None (occurrence: None)
  Receive Date: 20040803
  Receipt Date: 20040727
  Transmission Date: 20050211
  Serious: Yes (Hospitalization)
  Sender: FDA-Public Use
  Company Number: IT-GLAXOSMITHKLINE-B0340814A

PATIENT
  Age: 89 Year
  Sex: Female

DRUGS (5)
  1. TALAVIR [Suspect]
     Indication: HERPES ZOSTER
     Dosage: 3G PER DAY
     Route: 048
     Dates: start: 20040101, end: 20040719
  2. FRUSEMIDE [Concomitant]
     Dosage: 50MG PER DAY
     Route: 048
  3. METOPROLOL [Concomitant]
     Dosage: 50MG PER DAY
     Route: 048
  4. SPIRONOLACTONE [Concomitant]
     Dosage: 25MG PER DAY
     Route: 048
  5. THYROXINE SODIUM [Concomitant]
     Dosage: 50MG PER DAY
     Route: 048

REACTIONS (3)
  - BLOOD POTASSIUM DECREASED [None]
  - CONFUSIONAL STATE [None]
  - HALLUCINATION, VISUAL [None]
